FAERS Safety Report 8961808 (Version 1)
Quarter: 2012Q4

REPORT INFORMATION
  Report Type: 
  Country: US (occurrence: US)
  Receive Date: 20121212
  Receipt Date: 20121212
  Transmission Date: 20130627
  Serious: No
  Sender: FDA-Public Use
  Company Number: US-VERTEX PHARMACEUTICALS INC.-2012-025558

PATIENT
  Sex: Female
  Weight: 98 kg

DRUGS (3)
  1. INCIVEK [Suspect]
     Indication: HEPATITIS C
     Dosage: UNK
     Route: 048
  2. PEGASYS [Suspect]
     Indication: HEPATITIS C
  3. RIBAVIRIN [Suspect]
     Indication: HEPATITIS C

REACTIONS (12)
  - Weight decreased [Unknown]
  - Oral pain [Unknown]
  - Pain of skin [Unknown]
  - Pain [Unknown]
  - Alopecia [Unknown]
  - Decreased appetite [Unknown]
  - Asthenia [Unknown]
  - Fatigue [Unknown]
  - Sluggishness [Unknown]
  - Anaemia [Unknown]
  - Pruritus [Unknown]
  - Nausea [Unknown]
